FAERS Safety Report 11906075 (Version 5)
Quarter: 2016Q1

REPORT INFORMATION
  Report Type: Report from Study
  Country: US (occurrence: US)
  Receive Date: 20160111
  Receipt Date: 20160219
  Transmission Date: 20160526
  Serious: Yes (Other)
  Sender: FDA-Public Use
  Company Number: US-AMGEN-USASL2016000646

PATIENT
  Age: 32 Year
  Sex: Female

DRUGS (1)
  1. ENBREL [Suspect]
     Active Substance: ETANERCEPT
     Indication: RHEUMATOID ARTHRITIS
     Dosage: 50 MG, QWK
     Route: 065
     Dates: start: 20150914

REACTIONS (9)
  - Abortion spontaneous [Unknown]
  - Injection site reaction [Unknown]
  - Sinusitis [Unknown]
  - Pharyngitis streptococcal [Unknown]
  - Injection site warmth [Unknown]
  - Maternal exposure during pregnancy [Unknown]
  - Injection site erythema [Unknown]
  - Candida infection [Unknown]
  - Injection site induration [Unknown]
